FAERS Safety Report 6036286-X (Version None)
Quarter: 2009Q1

REPORT INFORMATION
  Report Type: 
  Country: None (occurrence: None)
  Receive Date: 20090113
  Receipt Date: 20090107
  Transmission Date: 20090719
  Serious: Yes (Hospitalization, Other)
  Sender: FDA-Public Use
  Company Number: PHEH2003US11069

PATIENT

DRUGS (15)
  1. ZOMETA [Suspect]
     Indication: MULTIPLE MYELOMA
     Dosage: 4 MG EVERY MONTH
     Route: 042
     Dates: start: 20020101, end: 20040101
  2. ZOMETA [Suspect]
     Dosage: EVERY 3 MONTHS
  3. AREDIA [Suspect]
     Indication: MULTIPLE MYELOMA
     Dosage: 90 MG, MONTHLY
     Route: 042
     Dates: start: 19950101, end: 20020101
  4. KYTRIL [Concomitant]
  5. CONJUGATED ESTROGENS [Concomitant]
  6. COZAAR [Concomitant]
  7. PROZAC [Concomitant]
  8. ESOMEPRAZOLE [Concomitant]
  9. VIOXX [Concomitant]
  10. DIAZEPAM [Concomitant]
  11. ALKERAN [Concomitant]
  12. ALLOPURINOL [Concomitant]
  13. PREDNISONE TAB [Concomitant]
  14. CLINDAMYCIN HCL [Concomitant]
  15. LEVAQUIN [Concomitant]

REACTIONS (18)
  - ABSCESS DRAINAGE [None]
  - ABSCESS JAW [None]
  - ANHEDONIA [None]
  - ANXIETY [None]
  - BONE DEBRIDEMENT [None]
  - BONE DISORDER [None]
  - DEFORMITY [None]
  - DYSPEPSIA [None]
  - EMOTIONAL DISTRESS [None]
  - IMPAIRED HEALING [None]
  - INJURY [None]
  - OSTEOMYELITIS [None]
  - OSTEONECROSIS [None]
  - PAIN [None]
  - PURULENT DISCHARGE [None]
  - SEQUESTRECTOMY [None]
  - SWELLING [None]
  - TOOTH EXTRACTION [None]
